FAERS Safety Report 7554273-7 (Version None)
Quarter: 2011Q2

REPORT INFORMATION
  Report Type: 
  Country: None (occurrence: None)
  Receive Date: 20110617
  Receipt Date: 20110611
  Transmission Date: 20111010
  Serious: Yes (Hospitalization, Other)
  Sender: FDA-Public Use
  Company Number: RU-US-EMD SERONO, INC.-7043040

PATIENT
  Sex: Male
  Weight: 66 kg

DRUGS (7)
  1. PLACEBO [Suspect]
     Route: 048
     Dates: start: 20100430, end: 20100504
  2. PLACEBO [Suspect]
     Indication: MULTIPLE SCLEROSIS
     Route: 048
     Dates: start: 20100201, end: 20100205
  3. PLACEBO [Suspect]
     Route: 048
     Dates: start: 20100403, end: 20100407
  4. REBIF [Suspect]
     Indication: MULTIPLE SCLEROSIS
     Route: 058
     Dates: start: 20100820, end: 20100901
  5. REBIF [Suspect]
     Route: 058
     Dates: start: 20100903, end: 20100915
  6. REBIF [Suspect]
     Route: 058
     Dates: start: 20100917, end: 20110216
  7. PLACEBO [Suspect]
     Route: 048
     Dates: start: 20100305, end: 20100309

REACTIONS (3)
  - WOUND INFECTION [None]
  - NECROSIS [None]
  - ERYSIPELAS [None]
